FAERS Safety Report 6623817-1 (Version None)
Quarter: 2010Q1

REPORT INFORMATION
  Report Type: 
  Country: None (occurrence: None)
  Receive Date: 20100310
  Receipt Date: 20100225
  Transmission Date: 20100710
  Serious: Yes (Other)
  Sender: FDA-Public Use
  Company Number: PHHY2009JP23412

PATIENT
  Sex: Female
  Weight: 47 kg

DRUGS (18)
  1. STI571/CGP57148B T35717+TAB [Suspect]
     Indication: ACUTE LYMPHOCYTIC LEUKAEMIA
     Dosage: 600 MG DAILY
     Route: 048
     Dates: start: 20080708, end: 20080721
  2. STI571/CGP57148B T35717+TAB [Suspect]
     Dosage: 200 MG DAILY
     Route: 048
     Dates: start: 20080806, end: 20080820
  3. STI571/CGP57148B T35717+TAB [Suspect]
     Dosage: 300 MG DAILY
     Route: 048
     Dates: start: 20080821, end: 20080827
  4. STI571/CGP57148B T35717+TAB [Suspect]
     Dosage: 400 MG DAILY
     Route: 048
     Dates: start: 20080828, end: 20080903
  5. STI571/CGP57148B T35717+TAB [Suspect]
     Dosage: 200 MG DAILY
     Route: 048
     Dates: start: 20081002, end: 20081017
  6. AMBISOME [Suspect]
     Indication: HEPATIC FUNCTION ABNORMAL
     Dosage: 100 MG DAILY
     Route: 041
     Dates: start: 20080718, end: 20080720
  7. ONCOVIN [Concomitant]
     Indication: ACUTE LYMPHOCYTIC LEUKAEMIA
     Dosage: 1.8 MG
     Route: 042
     Dates: start: 20080826, end: 20080826
  8. PREDONINE [Concomitant]
     Indication: ACUTE LYMPHOCYTIC LEUKAEMIA
     Dosage: 80 MG
     Route: 041
     Dates: start: 20080826, end: 20080826
  9. ZYLORIC ^FRESENIUS^ [Concomitant]
     Indication: PROPHYLAXIS
     Dosage: 300 MG
     Route: 048
     Dates: start: 20080628, end: 20080714
  10. METHYCOBAL [Concomitant]
     Indication: PROPHYLAXIS
     Dosage: 1.5 MG
     Route: 048
     Dates: start: 20080628, end: 20080923
  11. NEUQUINON [Concomitant]
     Indication: PROPHYLAXIS
     Dosage: 30 MG
     Route: 048
     Dates: start: 20080628, end: 20080923
  12. GASTER D [Concomitant]
     Indication: PROPHYLAXIS
     Dosage: 20 MG
     Route: 048
     Dates: start: 20080628, end: 20080715
  13. ITRIZOLE [Concomitant]
     Indication: PROPHYLAXIS
     Dosage: 200 MG
     Route: 048
     Dates: start: 20080628, end: 20081006
  14. POLYMYCIN B SULFATE [Concomitant]
     Indication: PROPHYLAXIS
     Dosage: 3MIU
     Route: 048
     Dates: start: 20080702, end: 20081006
  15. URALYT-U [Concomitant]
     Indication: PROPHYLAXIS
     Dosage: 6 G
     Route: 048
     Dates: start: 20080627, end: 20080714
  16. MAXIPIME [Concomitant]
     Indication: HEPATIC FUNCTION ABNORMAL
     Dosage: 3 G
     Route: 041
     Dates: start: 20080714, end: 20080930
  17. AMIKAMYCIN [Concomitant]
     Indication: HEPATIC FUNCTION ABNORMAL
     Dosage: 400 MG
     Route: 041
     Dates: start: 20080714, end: 20080930
  18. FUNGUARD [Concomitant]
     Indication: HEPATIC FUNCTION ABNORMAL
     Dosage: 100 MG
     Route: 041
     Dates: start: 20080730, end: 20080801

REACTIONS (5)
  - BLOOD AMYLASE INCREASED [None]
  - BONE MARROW FAILURE [None]
  - BONE MARROW TRANSPLANT [None]
  - LIVER DISORDER [None]
  - PLATELET COUNT INCREASED [None]
